FAERS Safety Report 7799380-9 (Version None)
Quarter: 2011Q4

REPORT INFORMATION
  Report Type: 
  Country: None (occurrence: None)
  Receive Date: 20111006
  Receipt Date: 20110928
  Transmission Date: 20120403
  Serious: Yes (Hospitalization)
  Sender: FDA-Public Use
  Company Number: AU-NOVOPROD-330693

PATIENT

DRUGS (1)
  1. NORDITROPIN NORDIFLEX [Suspect]
     Indication: GROWTH RETARDATION
     Dosage: 5MG PER WEEK - 6 DAYS PER WEEK
     Route: 058
     Dates: start: 20110225, end: 20110401

REACTIONS (2)
  - BRAIN NEOPLASM [None]
  - NEOPLASM RECURRENCE [None]
